FAERS Safety Report 13977134 (Version 1)
Quarter: 2017Q3

REPORT INFORMATION
  Report Type: Spontaneous
  Country: US (occurrence: US)
  Receive Date: 20170915
  Receipt Date: 20170915
  Transmission Date: 20171128
  Serious: No
  Sender: FDA-Public Use
  Company Number: US-ROCHE-714423

PATIENT

DRUGS (1)
  1. HERCEPTIN [Suspect]
     Active Substance: TRASTUZUMAB
     Indication: PRODUCT USED FOR UNKNOWN INDICATION
     Dosage: 3 WEEK REGIMEN FOR 52 WEEKS.  8 REGIMEN COMPLETED.
     Route: 065

REACTIONS (12)
  - Peripheral swelling [Unknown]
  - Constipation [Unknown]
  - Paraesthesia [Unknown]
  - Epistaxis [Unknown]
  - Onychomadesis [Unknown]
  - Rhinorrhoea [Unknown]
  - Onychoclasis [Unknown]
  - Hair growth abnormal [Unknown]
  - Alopecia [Unknown]
  - Arthralgia [Unknown]
  - Fatigue [Unknown]
  - Nausea [Unknown]
